FAERS Safety Report 6048304-3 (Version None)
Quarter: 2009Q1

REPORT INFORMATION
  Report Type: 
  Country: None (occurrence: None)
  Receive Date: 20090121
  Receipt Date: 20090121
  Transmission Date: 20090719
  Serious: Yes (Hospitalization)
  Sender: FDA-Public Use
  Company Number: None

PATIENT
  Age: 14 Year
  Sex: Male
  Weight: 40.8237 kg

DRUGS (1)
  1. ROBITUSSIN NIGHT TIME COUGH+COLD WYETH [Suspect]
     Indication: HYPERSENSITIVITY
     Dosage: 4 TSP ONCE PO
     Route: 048

REACTIONS (2)
  - PRODUCT QUALITY ISSUE [None]
  - REACTION TO AZO-DYES [None]
